FAERS Safety Report 6574336-2 (Version None)
Quarter: 2010Q1

REPORT INFORMATION
  Report Type: 
  Country: None (occurrence: None)
  Receive Date: 20100201
  Receipt Date: 20100120
  Transmission Date: 20100710
  Serious: Yes (Disabling)
  Sender: FDA-Public Use
  Company Number: 2010AL000532

PATIENT
  Age: 57 Year
  Sex: Female

DRUGS (3)
  1. METFORMIN HCL [Suspect]
     Indication: TYPE 2 DIABETES MELLITUS
     Dosage: 500 MG, PO
     Route: 048
     Dates: start: 20040603, end: 20041105
  2. TRYPTOPHAN [Concomitant]
  3. DOTHIEPIN HYDROCHLORIDE [Concomitant]

REACTIONS (1)
  - DEPRESSION [None]
